FAERS Safety Report 25794703 (Version 1)
Quarter: 2025Q3

REPORT INFORMATION
  Report Type: Spontaneous
  Country: US (occurrence: US)
  Receive Date: 20250912
  Receipt Date: 20250912
  Transmission Date: 20251021
  Serious: No
  Sender: ELI LILLY AND COMPANY
  Company Number: US-ELI_LILLY_AND_COMPANY-US202509009034

PATIENT
  Age: 24 Year
  Sex: Female

DRUGS (1)
  1. EBGLYSS [Suspect]
     Active Substance: LEBRIKIZUMAB-LBKZ
     Indication: Eczema
     Route: 065
     Dates: start: 202506

REACTIONS (3)
  - Injection site reaction [Recovering/Resolving]
  - Therapeutic product effect decreased [Unknown]
  - Pruritus [Unknown]
